FAERS Safety Report 25962959 (Version 5)
Quarter: 2025Q4

REPORT INFORMATION
  Report Type: Report from Study
  Country: US (occurrence: US)
  Receive Date: 20251027
  Receipt Date: 20251231
  Transmission Date: 20260118
  Serious: Yes (Other)
  Sender: PFIZER
  Company Number: US-PFIZER INC-202500209668

PATIENT
  Age: 73 Year
  Sex: Female

DRUGS (1)
  1. IBRANCE [Suspect]
     Active Substance: PALBOCICLIB
     Dosage: 75 MG

REACTIONS (13)
  - Neuropathy peripheral [Not Recovered/Not Resolved]
  - Thrombosis [Recovering/Resolving]
  - White blood cell count decreased [Not Recovered/Not Resolved]
  - Taste disorder [Unknown]
  - Asthenia [Unknown]
  - Musculoskeletal stiffness [Unknown]
  - Hypoaesthesia [Unknown]
  - Muscle contractions involuntary [Unknown]
  - Bone pain [Unknown]
  - Pain in extremity [Unknown]
  - Oral mucosal eruption [Recovering/Resolving]
  - Red blood cell count decreased [Recovering/Resolving]
  - Tumour marker increased [Unknown]
